FAERS Safety Report 25332272 (Version 1)
Quarter: 2025Q2

REPORT INFORMATION
  Report Type: Spontaneous
  Country: US (occurrence: US)
  Receive Date: 20250519
  Receipt Date: 20250519
  Transmission Date: 20250717
  Serious: Yes (Disabling, Other)
  Sender: ADMA BIOLOGICS
  Company Number: US-ADMA BIOLOGICS INC.-US-2025ADM000174

PATIENT
  Age: 6 Year
  Sex: Male

DRUGS (6)
  1. HUMAN IMMUNOGLOBULIN G [Suspect]
     Active Substance: HUMAN IMMUNOGLOBULIN G
     Indication: Seizure
     Dosage: 2 GRAM PER KILOGRAM, QD 2 DOSES
     Route: 042
  2. METHYLPREDNISOLONE [Suspect]
     Active Substance: METHYLPREDNISOLONE
     Indication: Seizure
     Dosage: 10 MG/KG, BID, 5 DAYS
     Route: 042
  3. METHYLPREDNISOLONE [Suspect]
     Active Substance: METHYLPREDNISOLONE
     Route: 042
  4. METHYLPREDNISOLONE [Suspect]
     Active Substance: METHYLPREDNISOLONE
     Dosage: 30 MG/KG, BID 2 DOSES
     Route: 042
  5. ANAKINRA [Suspect]
     Active Substance: ANAKINRA
     Indication: Seizure
     Dosage: 5 MILLIGRAM/KILOGRAM, Q12H (15 DAYS)
     Route: 042
  6. ANAKINRA [Suspect]
     Active Substance: ANAKINRA
     Dosage: 2-4 MG/KG, QD
     Route: 042

REACTIONS (7)
  - Status epilepticus [Unknown]
  - Posterior reversible encephalopathy syndrome [Unknown]
  - Drug-induced liver injury [Unknown]
  - Cognitive disorder [Not Recovered/Not Resolved]
  - Urinary tract infection [Unknown]
  - Nephrolithiasis [Unknown]
  - Off label use [Unknown]
